FAERS Safety Report 4895434-5 (Version None)
Quarter: 2006Q1

REPORT INFORMATION
  Report Type: 
  Country: None (occurrence: None)
  Receive Date: 20060130
  Receipt Date: 20050504
  Transmission Date: 20060701
  Serious: No
  Sender: FDA-Public Use
  Company Number: US-GLAXOSMITHKLINE-A0557264A

PATIENT
  Age: 44 Year
  Sex: Male

DRUGS (4)
  1. EPIVIR [Suspect]
     Indication: HIV INFECTION
     Route: 048
  2. KALETRA [Concomitant]
  3. VIREAD [Concomitant]
  4. MULTIVITAMIN [Concomitant]

REACTIONS (1)
  - DIARRHOEA [None]
